FAERS Safety Report 5320153-0 (Version None)
Quarter: 2007Q1

REPORT INFORMATION
  Report Type: 
  Country: None (occurrence: None)
  Receive Date: 20070209
  Receipt Date: 20070122
  Transmission Date: 20070707
  Serious: No
  Sender: FDA-Public Use
  Company Number: 200618330US

PATIENT
  Sex: Female

DRUGS (6)
  1. INSULIN GLARGINE (APIDRA) [Suspect]
     Indication: DIABETES MELLITUS
     Dosage: 10 U
     Dates: start: 20060901
  2. APIDRA [Suspect]
     Indication: DIABETES MELLITUS
     Dosage: 45 U
  3. INSULIN GLULSINE (APIDRA) [Suspect]
     Indication: DIABETES MELLITUS
     Dosage: 50 U
  4. APIDRA [Suspect]
     Indication: DIABETES MELLITUS
     Dosage: INJ
  5. LANTUS [Suspect]
     Indication: DIABETES MELLITUS
     Dosage: 2 U
  6. LANTUS [Suspect]
     Indication: DIABETES MELLITUS
     Dosage: 75 U INJ
     Dates: start: 20060201

REACTIONS (4)
  - BLOOD GLUCOSE INCREASED [None]
  - DRUG INEFFECTIVE [None]
  - FATIGUE [None]
  - PAIN IN EXTREMITY [None]
